FAERS Safety Report 17980307 (Version 1)
Quarter: 2020Q3

REPORT INFORMATION
  Report Type: Spontaneous
  Country: ES (occurrence: ES)
  Receive Date: 20200703
  Receipt Date: 20200703
  Transmission Date: 20201103
  Serious: Yes (Death, Other)
  Sender: FDA-Public Use
  Company Number: NVSC2020ES188758

PATIENT
  Age: 48 Year
  Sex: Male

DRUGS (4)
  1. PREDNISONE. [Suspect]
     Active Substance: PREDNISONE
     Indication: COGAN^S SYNDROME
     Dosage: UNK
     Route: 065
  2. CYCLOPHOSPHAMIDE. [Suspect]
     Active Substance: CYCLOPHOSPHAMIDE
     Indication: COGAN^S SYNDROME
     Dosage: UNK
     Route: 065
  3. METHOTREXATE. [Suspect]
     Active Substance: METHOTREXATE
     Indication: COGAN^S SYNDROME
     Dosage: UNK
     Route: 065
  4. TOCILIZUMAB. [Suspect]
     Active Substance: TOCILIZUMAB
     Indication: COGAN^S SYNDROME
     Dosage: UNK
     Route: 065

REACTIONS (5)
  - Neutropenia [Unknown]
  - Endocarditis bacterial [Fatal]
  - Product use in unapproved indication [Unknown]
  - Steroid diabetes [Unknown]
  - Paralysis [Unknown]
